FAERS Safety Report 8294891-4 (Version None)
Quarter: 2012Q2

REPORT INFORMATION
  Report Type: 
  Country: None (occurrence: None)
  Receive Date: 20120418
  Receipt Date: 20120405
  Transmission Date: 20120825
  Serious: Yes (Death, Hospitalization, Other)
  Sender: FDA-Public Use
  Company Number: DE-BAYER-2012-003477

PATIENT
  Age: 70 Year
  Sex: Male

DRUGS (1)
  1. ASPIRIN [Suspect]
     Indication: CORONARY ARTERY BYPASS
     Dosage: 100 MG, QD
     Route: 048

REACTIONS (4)
  - INFECTIOUS PLEURAL EFFUSION [None]
  - SUBCUTANEOUS EMPHYSEMA [None]
  - OESOPHAGEAL PERFORATION [None]
  - SEPSIS [None]
